FAERS Safety Report 13851897 (Version 1)
Quarter: 2017Q3

REPORT INFORMATION
  Report Type: Report from Study
  Country: CO (occurrence: CO)
  Receive Date: 20170809
  Receipt Date: 20170809
  Transmission Date: 20171127
  Serious: Yes (Other)
  Sender: FDA-Public Use
  Company Number: PHHY2017CO116900

PATIENT
  Age: 40 Year
  Sex: Female
  Weight: 76 kg

DRUGS (2)
  1. SANDIMMUN NEORAL [Suspect]
     Active Substance: CYCLOSPORINE
     Indication: ORGAN TRANSPLANT
     Dosage: 100 MG, Q12H
     Route: 048
     Dates: start: 20130517, end: 20140802
  2. SANDIMMUN NEORAL [Suspect]
     Active Substance: CYCLOSPORINE
     Indication: PROPHYLAXIS AGAINST TRANSPLANT REJECTION

REACTIONS (2)
  - Toxicity to various agents [Unknown]
  - BK virus infection [Unknown]

NARRATIVE: CASE EVENT DATE: 20140802
